FAERS Safety Report 6242194-1 (Version None)
Quarter: 2009Q2

REPORT INFORMATION
  Report Type: 
  Country: None (occurrence: None)
  Receive Date: 20090624
  Receipt Date: 20090617
  Transmission Date: 20091009
  Serious: Yes (Other)
  Sender: FDA-Public Use
  Company Number: ZA-BRISTOL-MYERS SQUIBB COMPANY-14674204

PATIENT
  Age: 52 Year
  Sex: Female

DRUGS (2)
  1. SINEMET [Suspect]
     Indication: NON-HODGKIN'S LYMPHOMA
     Route: 065
  2. MABTHERA [Interacting]

REACTIONS (2)
  - DRUG INEFFECTIVE [None]
  - DRUG INTERACTION [None]
